FAERS Safety Report 6163689-5 (Version None)
Quarter: 2009Q2

REPORT INFORMATION
  Report Type: 
  Country: None (occurrence: None)
  Receive Date: 20090420
  Receipt Date: 20090420
  Transmission Date: 20091009
  Serious: Yes (Other)
  Sender: FDA-Public Use
  Company Number: None

PATIENT
  Age: 62 Year
  Sex: Female
  Weight: 66.6788 kg

DRUGS (1)
  1. ZOLPIDEM TARTRATE [Suspect]
     Indication: INSOMNIA
     Dosage: 1 ABT. 2 PER MONTH PO
     Route: 048
     Dates: start: 20081129, end: 20090409

REACTIONS (3)
  - DISORIENTATION [None]
  - HALLUCINATION [None]
  - VOMITING [None]
